FAERS Safety Report 12532936 (Version 1)
Quarter: 2016Q3

REPORT INFORMATION
  Report Type: Spontaneous
  Country: US (occurrence: US)
  Receive Date: 20160706
  Receipt Date: 20160706
  Transmission Date: 20161109
  Serious: No
  Sender: FDA-Public Use
  Company Number: US-PURDUE-USA-2015-0126130

PATIENT
  Age: 56 Year
  Sex: Male

DRUGS (5)
  1. BUTRANS [Suspect]
     Active Substance: BUPRENORPHINE
     Indication: PAIN
     Dosage: 5 MCG/HR, WEEKLY
     Route: 062
     Dates: start: 20150902, end: 20150908
  2. BUTRANS [Suspect]
     Active Substance: BUPRENORPHINE
     Dosage: 20 MCG/HR, WEEKLY
     Route: 062
     Dates: start: 20150701, end: 20150729
  3. BUTRANS [Suspect]
     Active Substance: BUPRENORPHINE
     Dosage: 5MCG/HR PATCHES X 2
     Route: 062
     Dates: start: 20150826, end: 20150902
  4. BUTRANS [Suspect]
     Active Substance: BUPRENORPHINE
     Dosage: 10 MCG/HR, WEEKLY
     Route: 062
     Dates: start: 20150507, end: 20150630
  5. NORCO [Concomitant]
     Active Substance: ACETAMINOPHEN\HYDROCODONE BITARTRATE
     Indication: PAIN
     Dosage: 10/325 MG Q4H PRN
     Route: 048
     Dates: start: 20150507

REACTIONS (6)
  - Drug administered at inappropriate site [Unknown]
  - Drug ineffective [Unknown]
  - Application site pruritus [Unknown]
  - Application site exfoliation [Unknown]
  - Application site rash [Unknown]
  - Application site discharge [Unknown]

NARRATIVE: CASE EVENT DATE: 20150630
